FAERS Safety Report 7433422-5 (Version None)
Quarter: 2011Q2

REPORT INFORMATION
  Report Type: 
  Country: None (occurrence: None)
  Receive Date: 20110422
  Receipt Date: 20110414
  Transmission Date: 20111010
  Serious: Yes (Other)
  Sender: FDA-Public Use
  Company Number: US-CEPHALON-2011000894

PATIENT
  Sex: Female
  Weight: 64 kg

DRUGS (8)
  1. LEXAPRO [Concomitant]
     Dates: start: 20100801
  2. LAMICTAL [Concomitant]
     Dates: start: 20070101
  3. NUVIGIL [Suspect]
     Indication: FATIGUE
     Route: 048
     Dates: start: 20110125, end: 20110221
  4. AVINZA [Concomitant]
     Dates: start: 20090101
  5. LYRICA [Concomitant]
     Dates: start: 20070101
  6. SPIRIVA [Concomitant]
     Dates: start: 20090101
  7. CALCIUM [Concomitant]
     Dates: start: 20090101
  8. PERCOCET [Concomitant]
     Dates: start: 20080101

REACTIONS (6)
  - PAIN IN EXTREMITY [None]
  - SWOLLEN TONGUE [None]
  - GLOSSITIS [None]
  - RASH [None]
  - OEDEMA PERIPHERAL [None]
  - URTICARIA [None]
